FAERS Safety Report 15988504 (Version 1)
Quarter: 2019Q1

REPORT INFORMATION
  Report Type: Report from Study
  Country: GB (occurrence: GB)
  Receive Date: 20190221
  Receipt Date: 20190221
  Transmission Date: 20190418
  Serious: No
  Sender: FDA-Public Use
  Company Number: GB-ROCHE-2260604

PATIENT
  Age: 30 Year
  Sex: Female

DRUGS (1)
  1. OCREVUS [Suspect]
     Active Substance: OCRELIZUMAB
     Indication: RELAPSING-REMITTING MULTIPLE SCLEROSIS
     Route: 042

REACTIONS (5)
  - Fatigue [Unknown]
  - Nasopharyngitis [Unknown]
  - Pyrexia [Unknown]
  - Rash erythematous [Unknown]
  - Tachycardia [Unknown]
